FAERS Safety Report 20931858 (Version 1)
Quarter: 2022Q2

REPORT INFORMATION
  Report Type: Other
  Country: US (occurrence: None)
  Receive Date: 20220608
  Receipt Date: 20220608
  Transmission Date: 20220720
  Serious: No
  Sender: FDA-Public Use
  Company Number: US-ROCHE-2862207

PATIENT
  Age: 61 Year
  Sex: Male

DRUGS (15)
  1. TOCILIZUMAB [Suspect]
     Active Substance: TOCILIZUMAB
     Indication: COVID-19
     Route: 065
  2. AZITHROMYCIN [Concomitant]
     Active Substance: AZITHROMYCIN
  3. HYDROXYCHLOROQUINE [Concomitant]
     Active Substance: HYDROXYCHLOROQUINE
  4. OSELTAMIVIR [Concomitant]
     Active Substance: OSELTAMIVIR
  5. METHYLPREDNISOLONE [Concomitant]
     Active Substance: METHYLPREDNISOLONE
     Route: 042
  6. METHYLPREDNISOLONE [Concomitant]
     Active Substance: METHYLPREDNISOLONE
     Route: 042
  7. FUROSEMIDE [Concomitant]
     Active Substance: FUROSEMIDE
  8. ALBUTEROL [Concomitant]
     Active Substance: ALBUTEROL
  9. ENOXAPARIN [Concomitant]
     Active Substance: ENOXAPARIN
  10. VASOPRESSIN [Concomitant]
     Active Substance: VASOPRESSIN
     Dosage: 0.04 U/MIN
  11. NOREPINEPHRINE [Concomitant]
     Active Substance: NOREPINEPHRINE
     Dosage: 0.9 MCG/KG/MIN
  12. ARGATROBAN [Concomitant]
     Active Substance: ARGATROBAN
  13. METRONIDAZOLE [Concomitant]
     Active Substance: METRONIDAZOLE
  14. VANCOMYCIN [Concomitant]
     Active Substance: VANCOMYCIN
  15. PANTOPRAZOLE [Concomitant]
     Active Substance: PANTOPRAZOLE

REACTIONS (2)
  - Off label use [Unknown]
  - No adverse event [Unknown]
